FAERS Safety Report 26051864 (Version 1)
Quarter: 2025Q4

REPORT INFORMATION
  Report Type: Spontaneous
  Country: US (occurrence: US)
  Receive Date: 20251117
  Receipt Date: 20251117
  Transmission Date: 20260117
  Serious: Yes (Other)
  Sender: SANOFI AVENTIS
  Company Number: US-SA-2025SA340877

PATIENT
  Sex: Female
  Weight: 136 kg

DRUGS (15)
  1. KEVZARA [Suspect]
     Active Substance: SARILUMAB
     Indication: Polymyalgia rheumatica
     Dosage: 200MG,QOW
     Route: 058
     Dates: end: 2025
  2. GLIPIZIDE [Concomitant]
     Active Substance: GLIPIZIDE
  3. ELIQUIS [Concomitant]
     Active Substance: APIXABAN
  4. PREDNISONE [Concomitant]
     Active Substance: PREDNISONE
  5. PIOGLITAZONE [Concomitant]
     Active Substance: PIOGLITAZONE
  6. GABAPENTIN [Concomitant]
     Active Substance: GABAPENTIN
  7. ACETAMINOPHEN [Concomitant]
     Active Substance: ACETAMINOPHEN
  8. JARDIANCE [Concomitant]
     Active Substance: EMPAGLIFLOZIN
  9. BISOPROLOL FUMARATE [Concomitant]
     Active Substance: BISOPROLOL FUMARATE
  10. TYLENOL [Concomitant]
     Active Substance: ACETAMINOPHEN
  11. PRILOSEC OTC [Concomitant]
     Active Substance: OMEPRAZOLE MAGNESIUM
  12. MYCOPHENOLATE MOFETIL [Concomitant]
     Active Substance: MYCOPHENOLATE MOFETIL
  13. LEVOTHYROXINE SODIUM [Concomitant]
     Active Substance: LEVOTHYROXINE SODIUM
  14. JANUVIA [Concomitant]
     Active Substance: SITAGLIPTIN PHOSPHATE
  15. AMLODIPINE AND VALSARTAN [Concomitant]
     Active Substance: AMLODIPINE\VALSARTAN

REACTIONS (2)
  - Angina pectoris [Unknown]
  - Headache [Unknown]
